FAERS Safety Report 25216208 (Version 1)
Quarter: 2025Q2

REPORT INFORMATION
  Report Type: Spontaneous
  Country: HU (occurrence: HU)
  Receive Date: 20250418
  Receipt Date: 20250418
  Transmission Date: 20250717
  Serious: Yes (Other)
  Sender: ROCHE
  Company Number: HU-ROCHE-10000252730

PATIENT

DRUGS (1)
  1. HERCEPTIN [Suspect]
     Active Substance: TRASTUZUMAB
     Indication: Product used for unknown indication
     Route: 065

REACTIONS (6)
  - Cardiac failure [Unknown]
  - Anaemia [Unknown]
  - Emotional disorder [Unknown]
  - Fatigue [Unknown]
  - Pain [Unknown]
  - Ill-defined disorder [Unknown]
